FAERS Safety Report 6721631-X (Version None)
Quarter: 2010Q2

REPORT INFORMATION
  Report Type: 
  Country: None (occurrence: None)
  Receive Date: 20100512
  Receipt Date: 20100507
  Transmission Date: 20101027
  Serious: Yes (Life-Threatening, Hospitalization, Other)
  Sender: FDA-Public Use
  Company Number: PHHY2010DE09868

PATIENT
  Sex: Male

DRUGS (11)
  1. LEPONEX [Suspect]
     Dosage: 400 MG DAILY
     Route: 048
     Dates: start: 20090901, end: 20091211
  2. LEPONEX [Suspect]
     Dosage: 200 MG/DAY
     Route: 048
     Dates: start: 20091215, end: 20091215
  3. LEPONEX [Suspect]
     Dosage: 400 MG/DAY
     Route: 048
     Dates: start: 20091216, end: 20091216
  4. LEPONEX [Suspect]
     Dosage: 400 MG/DAY
     Route: 048
     Dates: start: 20091218, end: 20091220
  5. LEPONEX [Suspect]
     Dosage: 25-250 MG DAILY
     Route: 048
     Dates: start: 20091221, end: 20100108
  6. LEPONEX [Suspect]
     Dosage: 300 MG DAILY
     Route: 048
     Dates: start: 20100109
  7. MELPERONE [Interacting]
     Dosage: 25-650 MG DAILY
     Dates: start: 20090901
  8. DIAZEPAM [Interacting]
     Dosage: 5-450 MG DAILY
     Dates: start: 20090901
  9. AKINETON [Concomitant]
     Dosage: 4 MG DAILY
     Dates: start: 20090901
  10. FLUANXOL [Concomitant]
     Dosage: EVERY 28 DAYS
     Route: 030
  11. HALOPERIDOL [Concomitant]
     Dosage: 2 MG DAILY
     Dates: start: 20091231

REACTIONS (11)
  - DISORIENTATION [None]
  - DRUG TOXICITY [None]
  - DYSPHAGIA [None]
  - DYSPNOEA [None]
  - HICCUPS [None]
  - PLEURAL EFFUSION [None]
  - PNEUMONIA [None]
  - RESPIRATORY FAILURE [None]
  - RHABDOMYOLYSIS [None]
  - SALIVARY HYPERSECRETION [None]
  - SOMNOLENCE [None]
